FAERS Safety Report 14159345 (Version 13)
Quarter: 2018Q2

REPORT INFORMATION
  Report Type: Spontaneous
  Country: US (occurrence: US)
  Receive Date: 20171106
  Receipt Date: 20180426
  Transmission Date: 20180711
  Serious: Yes (Hospitalization)
  Sender: FDA-Public Use
  Company Number: US-BIOGEN-2017BI00479144

PATIENT
  Age: 10 Month
  Sex: Female

DRUGS (1)
  1. SPINRAZA [Suspect]
     Active Substance: NUSINERSEN
     Indication: SPINAL MUSCULAR ATROPHY
     Dosage: FIRST 3 LOADING DOSES EVERY14 DAYS. 4TH ?DOSE AFTER 30 DAYS.?MAINT DOSE EVERY 4 MOS?EVERY 4 MONTHS
     Route: 037
     Dates: start: 20171025

REACTIONS (8)
  - Proteinuria [Not Recovered/Not Resolved]
  - Respiratory failure [Not Recovered/Not Resolved]
  - Asthma [Recovered/Resolved]
  - Platelet disorder [Recovered/Resolved with Sequelae]
  - Lower limb fracture [Not Recovered/Not Resolved]
  - Blood urine present [Not Recovered/Not Resolved]
  - Rhinovirus infection [Not Recovered/Not Resolved]
  - Cardiac operation [Not Recovered/Not Resolved]

NARRATIVE: CASE EVENT DATE: 20171101
